FAERS Safety Report 6644590-7 (Version None)
Quarter: 2010Q1

REPORT INFORMATION
  Report Type: 
  Country: None (occurrence: None)
  Receive Date: 20100322
  Receipt Date: 20100311
  Transmission Date: 20100710
  Serious: Yes (Other)
  Sender: FDA-Public Use
  Company Number: US-ELI_LILLY_AND_COMPANY-US201001004106

PATIENT
  Sex: Female
  Weight: 132.88 kg

DRUGS (19)
  1. BYETTA [Suspect]
     Indication: TYPE 2 DIABETES MELLITUS
     Dosage: 5 UG, 2/D
     Dates: start: 20070720, end: 20070820
  2. BYETTA [Suspect]
     Dosage: 10 UG, 2/D
     Dates: start: 20070821, end: 20091203
  3. ALBUTEROL [Concomitant]
     Dosage: UNK, AS NEEDED
     Route: 055
  4. AVAPRO [Concomitant]
     Indication: BLOOD PRESSURE
     Dosage: 150 MG, 2/D
  5. BACTRIM DS [Concomitant]
     Dosage: UNK, 2/D
  6. CARDIZEM CD [Concomitant]
     Indication: BLOOD PRESSURE
     Dosage: 180 MG, 2/D
  7. CRESTOR [Concomitant]
     Indication: BLOOD CHOLESTEROL
     Dosage: 5 MG, EACH EVENING
  8. DETROL LA [Concomitant]
     Indication: BLADDER DISORDER
     Dosage: 4 MG, DAILY (1/D)
  9. DYAZIDE [Concomitant]
     Indication: BLOOD PRESSURE
     Dosage: UNK, DAILY (1/D)
  10. FLAGYL [Concomitant]
     Dosage: 250 MG, 3/D
  11. PROZAC [Concomitant]
     Indication: AFFECTIVE DISORDER
     Dosage: 40 MG, DAILY (1/D)
  12. SINGULAIR [Concomitant]
     Indication: HYPERSENSITIVITY
     Dosage: 10 MG, DAILY (1/D)
  13. TRAZODONE HCL [Concomitant]
     Indication: INSOMNIA
     Dosage: 50 MG, EACH EVENING
  14. SEREVENT [Concomitant]
     Dosage: UNK, DAILY (1/D)
     Route: 055
  15. TEKTURNA                           /01763601/ [Concomitant]
     Dosage: 150 MG, DAILY (1/D)
  16. VANIQA [Concomitant]
     Dosage: UNK, DAILY (1/D)
     Route: 061
  17. ATIVAN [Concomitant]
     Indication: ANXIETY
     Dosage: 0.5 MG, AS NEEDED
  18. ZITHROMAX [Concomitant]
     Dosage: 500 MG, DAILY (1/D)
  19. DARVOCET-N 100 [Concomitant]
     Dosage: UNK, AS NEEDED

REACTIONS (2)
  - PANCREATITIS ACUTE [None]
  - WEIGHT DECREASED [None]
